FAERS Safety Report 15147755 (Version 1)
Quarter: 2018Q3

REPORT INFORMATION
  Report Type: Spontaneous
  Country: US (occurrence: US)
  Receive Date: 20180619
  Receipt Date: 20180619
  Transmission Date: 20181010
  Serious: Yes (Other)
  Sender: FDA-Public Use
  Company Number: None

PATIENT
  Age: 75 Year
  Sex: Female
  Weight: 82.85 kg

DRUGS (10)
  1. AMLODIPINE [Concomitant]
     Active Substance: AMLODIPINE BESYLATE
  2. EXEMESTANE. [Suspect]
     Active Substance: EXEMESTANE
     Indication: BREAST CANCER
     Route: 048
     Dates: start: 20180426, end: 20180612
  3. RANITIDINE. [Concomitant]
     Active Substance: RANITIDINE
  4. BENICAR [Concomitant]
     Active Substance: OLMESARTAN MEDOXOMIL
  5. TRAMADOL. [Concomitant]
     Active Substance: TRAMADOL
  6. ATENOLOL. [Concomitant]
     Active Substance: ATENOLOL
  7. LANTUS [Concomitant]
     Active Substance: INSULIN GLARGINE
  8. LORATADINE. [Concomitant]
     Active Substance: LORATADINE
  9. METFORMIN [Concomitant]
     Active Substance: METFORMIN HYDROCHLORIDE
  10. AFINITOR [Suspect]
     Active Substance: EVEROLIMUS
     Indication: BREAST CANCER
     Route: 048
     Dates: start: 20180426, end: 20180612

REACTIONS (2)
  - Peripheral swelling [None]
  - Pruritus [None]
